FAERS Safety Report 18718761 (Version 1)
Quarter: 2021Q1

REPORT INFORMATION
  Report Type: Spontaneous
  Country: US (occurrence: US)
  Receive Date: 20210108
  Receipt Date: 20210108
  Transmission Date: 20210419
  Serious: No
  Sender: FDA-Public Use
  Company Number: US-TEVA-2021-US-1866246

PATIENT
  Sex: Female

DRUGS (1)
  1. ARMODAFINIL. [Suspect]
     Active Substance: ARMODAFINIL
     Route: 065

REACTIONS (6)
  - Headache [Unknown]
  - Product substitution issue [Unknown]
  - Drug hypersensitivity [Unknown]
  - Product quality issue [Unknown]
  - Illness [Unknown]
  - Product dispensing error [Unknown]
